FAERS Safety Report 24612950 (Version 2)
Quarter: 2025Q3

REPORT INFORMATION
  Report Type: Report from Study
  Country: US (occurrence: None)
  Receive Date: 20241113
  Receipt Date: 20250802
  Transmission Date: 20251021
  Serious: Yes (Other)
  Sender: ALEXION PHARMACEUTICALS
  Company Number: US-ASTRAZENECA-202411USA001261US

PATIENT
  Sex: Female

DRUGS (1)
  1. FASENRA [Suspect]
     Active Substance: BENRALIZUMAB
     Indication: Asthma

REACTIONS (1)
  - Hepatic cirrhosis [Unknown]
